FAERS Safety Report 8990646 (Version 1)
Quarter: 2012Q4

REPORT INFORMATION
  Report Type: 
  Country: US (occurrence: US)
  Receive Date: 20121228
  Receipt Date: 20121228
  Transmission Date: 20130627
  Serious: Yes (Other)
  Sender: FDA-Public Use
  Company Number: US-JNJFOC-20121212244

PATIENT
  Sex: Male

DRUGS (1)
  1. PREZISTA [Suspect]
     Indication: HIV INFECTION
     Route: 048

REACTIONS (3)
  - Hepatotoxicity [Unknown]
  - Blood creatine increased [Unknown]
  - Renal injury [Unknown]
